FAERS Safety Report 7254498-4 (Version None)
Quarter: 2011Q1

REPORT INFORMATION
  Report Type: 
  Country: None (occurrence: None)
  Receive Date: 20110129
  Receipt Date: 20100415
  Transmission Date: 20110831
  Serious: Yes (Hospitalization)
  Sender: FDA-Public Use
  Company Number: US-ABBOTT-10P-163-0639048-00

PATIENT
  Sex: Male
  Weight: 64 kg

DRUGS (10)
  1. ACETAMINOPHEN [Concomitant]
     Dates: start: 20011217, end: 20011217
  2. ACETAMINOPHEN [Concomitant]
     Indication: PRODUCT USED FOR UNKNOWN INDICATION
     Dates: start: 20011207, end: 20011207
  3. ANTIHISTAMINES [Concomitant]
     Indication: PRODUCT USED FOR UNKNOWN INDICATION
     Dates: start: 20020115, end: 20020115
  4. INFLIXIMAB [Suspect]
     Indication: CROHN'S DISEASE
     Dosage: LYOPHILIZED POWDER 5 MG/KG
     Route: 042
     Dates: start: 19990714
  5. FOLIC ACID [Concomitant]
     Indication: CROHN'S DISEASE
  6. OTHER CROHN'S THERAPY [Concomitant]
     Indication: PRODUCT USED FOR UNKNOWN INDICATION
  7. STEROIDS [Concomitant]
     Dates: start: 20011217, end: 20011217
  8. ACETAMINOPHEN [Concomitant]
     Dates: start: 20020115, end: 20020115
  9. HUMIRA [Suspect]
     Indication: CROHN'S DISEASE
  10. STEROIDS [Concomitant]
     Indication: PRODUCT USED FOR UNKNOWN INDICATION
     Dates: start: 20011207, end: 20011207

REACTIONS (4)
  - UROSEPSIS [None]
  - URINARY TRACT INFECTION BACTERIAL [None]
  - NEPHROLITHIASIS [None]
  - PYELONEPHRITIS [None]
